FAERS Safety Report 8801324 (Version 1)
Quarter: 2012Q4

REPORT INFORMATION
  Report Type: Report from Study
  Country: US (occurrence: US)
  Receive Date: 20120921
  Receipt Date: 20120921
  Transmission Date: 20130627
  Serious: Yes (Hospitalization, Other)
  Sender: FDA-Public Use
  Company Number: US-PFIZER INC-2012228838

PATIENT
  Age: 65 Year
  Sex: Female
  Weight: 73.5 kg

DRUGS (3)
  1. REVATIO [Suspect]
     Dosage: UNK
  2. REMODULIN [Suspect]
     Indication: PULMONARY ARTERIAL HYPERTENSION
     Dosage: 0.023 ug/kg,1 in 1 min
     Route: 042
     Dates: start: 20120207
  3. COUMADIN [Concomitant]
     Dosage: UNK

REACTIONS (1)
  - Device related infection [Unknown]
